FAERS Safety Report 13006086 (Version 1)
Quarter: 2016Q4

REPORT INFORMATION
  Report Type: Spontaneous
  Country: US (occurrence: US)
  Receive Date: 20161206
  Receipt Date: 20161206
  Transmission Date: 20170207
  Serious: No
  Sender: FDA-Public Use
  Company Number: None

PATIENT

DRUGS (2)
  1. LEVEMIR [Suspect]
     Active Substance: INSULIN DETEMIR
  2. LANTUS [Suspect]
     Active Substance: INSULIN GLARGINE
     Dosage: 100 UNIT/ML

REACTIONS (4)
  - Wrong drug administered [None]
  - Device computer issue [None]
  - Blood glucose decreased [None]
  - Unresponsive to stimuli [None]
